FAERS Safety Report 13819676 (Version 2)
Quarter: 2017Q3

REPORT INFORMATION
  Report Type: Report from Study
  Country: US (occurrence: US)
  Receive Date: 20170731
  Receipt Date: 20170824
  Transmission Date: 20171127
  Serious: Yes (Hospitalization, Other)
  Sender: FDA-Public Use
  Company Number: US-GILEAD-2017-0285376

PATIENT
  Age: 82 Year
  Sex: Female

DRUGS (8)
  1. OMEPRAZOLE. [Concomitant]
     Active Substance: OMEPRAZOLE
  2. OXYCODONE [Concomitant]
     Active Substance: OXYCODONE
  3. APIXABAN [Concomitant]
     Active Substance: APIXABAN
  4. DILTIAZEM. [Concomitant]
     Active Substance: DILTIAZEM
  5. ZOFRAN [Concomitant]
     Active Substance: ONDANSETRON HYDROCHLORIDE
  6. AMBRISENTAN [Suspect]
     Active Substance: AMBRISENTAN
     Indication: PULMONARY HYPERTENSION
     Dosage: 10 MG, QD
     Route: 048
     Dates: start: 20161220
  7. FERROUS SULFATE. [Concomitant]
     Active Substance: FERROUS SULFATE
  8. PLAQUENIL                          /00072602/ [Concomitant]
     Active Substance: HYDROXYCHLOROQUINE DIPHOSPHATE

REACTIONS (2)
  - Hip fracture [Recovered/Resolved]
  - Cholangitis [Recovered/Resolved]

NARRATIVE: CASE EVENT DATE: 20170801
